FAERS Safety Report 9904873 (Version 1)
Quarter: 2013Q2

REPORT INFORMATION
  Report Type: Spontaneous
  Country: US (occurrence: None)
  Receive Date: 20130305
  Receipt Date: 20130305
  Transmission Date: 20140414
  Serious: Yes (Hospitalization)
  Sender: FDA-Public Use
  Company Number: 163-21880-12030596

PATIENT
  Age: 88 Year
  Sex: Female

DRUGS (7)
  1. REVLIMID [Suspect]
     Indication: PLASMA CELL MYELOMA
     Route: 048
     Dates: start: 20120210
  2. DEXAMETHASONE (DEXAMEHTASONE) (UNKNOWN) [Concomitant]
  3. LASIX (FUROSEMIDE) (UNKNOWN) [Concomitant]
  4. PLAVIX (CLOPIDOGREL SULFATE) (UNKNOWN) [Concomitant]
  5. ECOTRIN (ACETYLSALICYLIC ACID) (UNKNOWN) [Concomitant]
  6. METOPROLOL TARTRATE (METOPROLOL TARTRATE) (UNKNOWN) [Concomitant]
  7. HYDRALAZINE HCI (HYDRALAZINE) (UNKNOWN) [Concomitant]

REACTIONS (1)
  - Renal failure [None]
